FAERS Safety Report 5039146-6 (Version None)
Quarter: 2006Q2

REPORT INFORMATION
  Report Type: 
  Country: None (occurrence: None)
  Receive Date: 20060629
  Receipt Date: 20060526
  Transmission Date: 20061013
  Serious: Yes (Life-Threatening, Hospitalization)
  Sender: FDA-Public Use
  Company Number: JP-JPN-A200601742

PATIENT
  Age: 89 Year
  Sex: Male
  Weight: 36 kg

DRUGS (3)
  1. MODACIN [Suspect]
     Indication: PNEUMONIA ASPIRATION
     Dosage: 1G TWICE PER DAY
     Route: 042
     Dates: start: 20060516, end: 20060522
  2. CLINDAMYCIN HCL [Suspect]
     Indication: PNEUMONIA ASPIRATION
     Dosage: 600MG TWICE PER DAY
     Route: 042
     Dates: start: 20060516, end: 20060522
  3. ELASPOL [Suspect]
     Indication: LUNG DISORDER
     Route: 042
     Dates: start: 20060516, end: 20060522

REACTIONS (17)
  - ALANINE AMINOTRANSFERASE INCREASED [None]
  - ASPARTATE AMINOTRANSFERASE INCREASED [None]
  - BLOOD ALKALINE PHOSPHATASE INCREASED [None]
  - BLOOD CREATINE PHOSPHOKINASE INCREASED [None]
  - BLOOD CREATININE INCREASED [None]
  - BLOOD LACTATE DEHYDROGENASE INCREASED [None]
  - BLOOD UREA [None]
  - BLOOD UREA INCREASED [None]
  - GAMMA-GLUTAMYLTRANSFERASE INCREASED [None]
  - HAEMORRHAGE [None]
  - LIVER DISORDER [None]
  - PLATELET COUNT ABNORMAL [None]
  - PLATELET COUNT DECREASED [None]
  - PYREXIA [None]
  - RASH [None]
  - RASH GENERALISED [None]
  - RENAL DISORDER [None]
